FAERS Safety Report 17153591 (Version 2)
Quarter: 2020Q1

REPORT INFORMATION
  Report Type: Spontaneous
  Country: CA (occurrence: CA)
  Receive Date: 20191213
  Receipt Date: 20200317
  Transmission Date: 20200409
  Serious: Yes (Other)
  Sender: FDA-Public Use
  Company Number: CA-PFIZER INC-2019534583

PATIENT

DRUGS (7)
  1. PROPOFOL. [Suspect]
     Active Substance: PROPOFOL
     Indication: ANAESTHESIA
     Dosage: 0.5 MG/KG, INDUCTION
     Route: 065
  2. ISOFLURANE. [Suspect]
     Active Substance: ISOFLURANE
     Indication: ANAESTHESIA
     Dosage: UNK
     Route: 065
  3. REMIFENTANIL [Suspect]
     Active Substance: REMIFENTANIL
     Dosage: 0.25 UG/KG 5 MINS AFTER INTUBATION (EVERY 1 MINUTE)
     Route: 065
  4. PROPOFOL. [Suspect]
     Active Substance: PROPOFOL
     Dosage: 10 MG, EVERY 10 SECONDS TO LOSS OF CONSCIOUSNESS
     Route: 065
  5. REMIFENTANIL [Suspect]
     Active Substance: REMIFENTANIL
     Indication: ANAESTHESIA
     Dosage: 1 UG/KG, : INITIAL SLOW BOLUS OVER 30-60 SECONDS
     Route: 040
  6. REMIFENTANIL [Suspect]
     Active Substance: REMIFENTANIL
     Dosage: 0.5 UG/KG, INFUSION
     Route: 065
  7. PROPOFOL. [Suspect]
     Active Substance: PROPOFOL
     Dosage: 100 UG/KG INFUSION (1 EVERY 1 MINUTES)
     Route: 065

REACTIONS (3)
  - Apnoea [Recovered/Resolved]
  - Muscle rigidity [Recovered/Resolved]
  - Loss of consciousness [Recovered/Resolved]
